FAERS Safety Report 7918990-9 (Version None)
Quarter: 2011Q4

REPORT INFORMATION
  Report Type: 
  Country: None (occurrence: None)
  Receive Date: 20111116
  Receipt Date: 20111109
  Transmission Date: 20120403
  Serious: Yes (Hospitalization, Other)
  Sender: FDA-Public Use
  Company Number: US-ASTRAZENECA-2011SE68115

PATIENT
  Age: 55 Year
  Sex: Male

DRUGS (4)
  1. PROTONIX [Concomitant]
     Indication: GASTROOESOPHAGEAL REFLUX DISEASE
  2. CRESTOR [Suspect]
     Route: 048
  3. ZETIA [Concomitant]
  4. LIPITOR [Concomitant]

REACTIONS (5)
  - BLOOD CHOLESTEROL INCREASED [None]
  - PANCREATITIS [None]
  - HYPERTENSION [None]
  - ARTERIAL OCCLUSIVE DISEASE [None]
  - ARTHRITIS REACTIVE [None]
